FAERS Safety Report 18432927 (Version 2)
Quarter: 2020Q4

REPORT INFORMATION
  Report Type: Report from Study
  Country: US (occurrence: US)
  Receive Date: 20201027
  Receipt Date: 20201119
  Transmission Date: 20210114
  Serious: Yes (Hospitalization, Other)
  Sender: FDA-Public Use
  Company Number: NVSC2020US283488

PATIENT
  Age: 58 Year
  Sex: Female

DRUGS (1)
  1. ENTRESTO [Suspect]
     Active Substance: SACUBITRIL\VALSARTAN
     Indication: PRODUCT USED FOR UNKNOWN INDICATION
     Dosage: UNK UNK, BID
     Route: 048
     Dates: start: 202010

REACTIONS (8)
  - Gastric disorder [Unknown]
  - Throat clearing [Unknown]
  - Palpitations [Unknown]
  - Product dose omission issue [Unknown]
  - Blood pressure decreased [Unknown]
  - Weight decreased [Unknown]
  - Memory impairment [Unknown]
  - Magnesium deficiency [Unknown]
